FAERS Safety Report 6863308-6 (Version None)
Quarter: 2010Q3

REPORT INFORMATION
  Report Type: 
  Country: None (occurrence: None)
  Receive Date: 20100721
  Receipt Date: 20100716
  Transmission Date: 20110219
  Serious: Yes (Death)
  Sender: FDA-Public Use
  Company Number: GB-WYE-G06416010

PATIENT
  Age: 95 Year
  Sex: Female

DRUGS (4)
  1. PIPERACILLIN AND TAZOBACTAM [Suspect]
     Indication: URINARY TRACT INFECTION
     Dosage: (4.5G MADE UP IN 20ML OF WATER)
     Route: 040
     Dates: start: 20100630, end: 20100630
  2. PIPERACILLIN AND TAZOBACTAM [Suspect]
     Dosage: HIGHER DOSE THAN 4.5G PER 20ML
     Dates: start: 20100630
  3. TRIMETHOPRIM [Concomitant]
     Indication: URINARY TRACT INFECTION
     Dosage: UNKNOWN
     Dates: start: 20100628
  4. SODIUM CHLORIDE [Concomitant]
     Dosage: UNKNOWN

REACTIONS (1)
  - CARDIO-RESPIRATORY ARREST [None]
